FAERS Safety Report 6333451-9 (Version None)
Quarter: 2009Q3

REPORT INFORMATION
  Report Type: 
  Country: None (occurrence: None)
  Receive Date: 20090828
  Receipt Date: 20090820
  Transmission Date: 20100115
  Serious: Yes (Other)
  Sender: FDA-Public Use
  Company Number: PHHY2009CN35191

PATIENT
  Age: 54 Year
  Sex: Male

DRUGS (5)
  1. MYCOPHENOLIC ACID [Suspect]
     Indication: LIVER TRANSPLANT
     Dosage: 0.75 G, BID
     Route: 048
  2. FK 506 [Concomitant]
     Indication: LIVER TRANSPLANT
     Dosage: 2 MG, BID
     Route: 048
  3. FK 506 [Concomitant]
     Indication: IMMUNOSUPPRESSION
  4. METHYLPREDNISOLONE [Concomitant]
     Indication: LIVER TRANSPLANT
     Route: 042
  5. METHYLPREDNISOLONE [Concomitant]
     Indication: IMMUNOSUPPRESSION

REACTIONS (11)
  - COMA [None]
  - HEPATIC FUNCTION ABNORMAL [None]
  - HYPOTONIA [None]
  - LACK OF SPONTANEOUS SPEECH [None]
  - LETHARGY [None]
  - LUNG INFECTION [None]
  - MENTAL DISORDER [None]
  - OSMOTIC DEMYELINATION SYNDROME [None]
  - PUPILLARY LIGHT REFLEX TESTS ABNORMAL [None]
  - SPEECH DISORDER [None]
  - TRACHEOSTOMY [None]
